FAERS Safety Report 16204192 (Version 1)
Quarter: 2019Q2

REPORT INFORMATION
  Report Type: Spontaneous
  Country: CN (occurrence: CN)
  Receive Date: 20190416
  Receipt Date: 20190416
  Transmission Date: 20190711
  Serious: Yes (Other)
  Sender: FDA-Public Use
  Company Number: CN-NAPPMUNDI-GBR-2019-0065248

PATIENT
  Age: 44 Year
  Sex: Female
  Weight: 45 kg

DRUGS (1)
  1. MS CONTIN [Suspect]
     Active Substance: MORPHINE SULFATE
     Indication: ANALGESIC THERAPY
     Dosage: 30 MG, Q12H
     Route: 048
     Dates: start: 20190311, end: 20190311

REACTIONS (2)
  - Dizziness [Recovering/Resolving]
  - Amaurosis [Unknown]

NARRATIVE: CASE EVENT DATE: 20190311
